FAERS Safety Report 25908364 (Version 1)
Quarter: 2025Q4

REPORT INFORMATION
  Report Type: Spontaneous
  Country: US (occurrence: US)
  Receive Date: 20251010
  Receipt Date: 20251010
  Transmission Date: 20260118
  Serious: No
  Sender: SPROUT PHARMACEUTICALS
  Company Number: US-Sprout Pharmaceuticals, Inc.-2024SP000260

PATIENT

DRUGS (4)
  1. ADDYI [Suspect]
     Active Substance: FLIBANSERIN
     Dosage: 100 MILLIGRAM, DAILY IN THE EVENING
     Route: 048
     Dates: start: 20240805, end: 20240805
  2. ADDYI [Suspect]
     Active Substance: FLIBANSERIN
     Indication: Asthenia
     Dosage: 100 MILLIGRAM, DAILY IN THE EVENING
     Route: 048
     Dates: start: 20240826, end: 20240826
  3. ADDYI [Suspect]
     Active Substance: FLIBANSERIN
     Indication: Libido decreased
     Dosage: 100 MILLIGRAM, DAILY IN THE EVENING
     Route: 048
     Dates: start: 20240826, end: 20240826
  4. ESTRADIOL TRANSDERMAL SYSTEM [Concomitant]
     Active Substance: ESTRADIOL
     Indication: Product used for unknown indication
     Dosage: UNK UNK , TWICE A WEEK
     Route: 062

REACTIONS (4)
  - Erythema [Not Recovered/Not Resolved]
  - Product use in unapproved indication [Recovered/Resolved]
  - Lip swelling [Not Recovered/Not Resolved]
  - Rash [Not Recovered/Not Resolved]

NARRATIVE: CASE EVENT DATE: 20240805
